FAERS Safety Report 5332518-1 (Version None)
Quarter: 2007Q2

REPORT INFORMATION
  Report Type: 
  Country: None (occurrence: None)
  Receive Date: 20070523
  Receipt Date: 20070516
  Transmission Date: 20071010
  Serious: Yes (Other)
  Sender: FDA-Public Use
  Company Number: JP-ASTRAZENECA-2006AP06043

PATIENT
  Age: 19011 Day
  Sex: Male
  Weight: 92 kg

DRUGS (9)
  1. MARCAINE [Suspect]
     Indication: SPINAL ANAESTHESIA
     Dosage: L 3/4 INTERSPACE
     Route: 037
     Dates: start: 20060809, end: 20060809
  2. FLOMOX [Concomitant]
     Indication: PYODERMA
     Route: 048
     Dates: start: 20060803, end: 20060808
  3. MARZULENE-S [Concomitant]
     Indication: GASTRITIS
     Route: 048
     Dates: start: 20060803, end: 20060808
  4. VENCOLL [Concomitant]
     Indication: CONSTIPATION
     Route: 048
     Dates: start: 20060808, end: 20060808
  5. PURSENNID [Concomitant]
     Indication: CONSTIPATION
     Route: 048
     Dates: start: 20060808, end: 20060808
  6. PANSPORIN [Concomitant]
     Dates: start: 20060809, end: 20060812
  7. LOXONIN [Concomitant]
     Route: 048
     Dates: end: 20060912
  8. ADONAMIN C [Concomitant]
     Dates: start: 20060809, end: 20060812
  9. POSTERISAN [Concomitant]

REACTIONS (1)
  - SENSORY DISTURBANCE [None]
